FAERS Safety Report 12995578 (Version 1)
Quarter: 2016Q4

REPORT INFORMATION
  Report Type: Spontaneous
  Country: FR (occurrence: FR)
  Receive Date: 20161202
  Receipt Date: 20161202
  Transmission Date: 20170207
  Serious: Yes (Hospitalization)
  Sender: FDA-Public Use
  Company Number: FR-GLAXOSMITHKLINE-FR2016GSK176396

PATIENT
  Age: 46 Year
  Sex: Female

DRUGS (3)
  1. DIPIPERON [Suspect]
     Active Substance: PIPAMPERONE
     Indication: SUICIDE ATTEMPT
     Dosage: 6 DF, SINGLE
     Route: 048
     Dates: start: 20160613, end: 20160613
  2. LAMICTAL [Suspect]
     Active Substance: LAMOTRIGINE
     Indication: SUICIDE ATTEMPT
     Dosage: 14 DF, SINGLE
     Route: 048
     Dates: start: 20160613, end: 20160613
  3. TERALITHE [Suspect]
     Active Substance: LITHIUM CARBONATE
     Indication: SUICIDE ATTEMPT
     Dosage: 10 DF, SINGLE
     Route: 048
     Dates: start: 20160613, end: 20160613

REACTIONS (2)
  - Toxicity to various agents [Recovered/Resolved]
  - Drug level increased [Recovered/Resolved]

NARRATIVE: CASE EVENT DATE: 20160613
